FAERS Safety Report 21887135 (Version 4)
Quarter: 2023Q1

REPORT INFORMATION
  Report Type: Spontaneous
  Country: US (occurrence: US)
  Receive Date: 20230119
  Receipt Date: 20230209
  Transmission Date: 20230418
  Serious: Yes (Other)
  Sender: FDA-Public Use
  Company Number: US-JNJFOC-20230127072

PATIENT
  Sex: Male

DRUGS (7)
  1. INVEGA SUSTENNA [Suspect]
     Active Substance: PALIPERIDONE PALMITATE
     Indication: Bipolar I disorder
     Route: 030
     Dates: start: 20221212, end: 20221212
  2. INVEGA SUSTENNA [Suspect]
     Active Substance: PALIPERIDONE PALMITATE
     Indication: Schizoaffective disorder
  3. INVEGA SUSTENNA [Suspect]
     Active Substance: PALIPERIDONE PALMITATE
  4. VRAYLAR [Concomitant]
     Active Substance: CARIPRAZINE
     Indication: Drug therapy
     Dates: start: 202301
  5. LAMOTRIGINE [Concomitant]
     Active Substance: LAMOTRIGINE
     Indication: Drug therapy
     Dates: start: 202210
  6. TRAZODONE [Concomitant]
     Active Substance: TRAZODONE HYDROCHLORIDE
     Indication: Sleep disorder
     Dates: start: 202210
  7. BUPROPION [Concomitant]
     Active Substance: BUPROPION
     Indication: Depression
     Dates: start: 202210

REACTIONS (12)
  - Suicidal ideation [Unknown]
  - Asthenia [Unknown]
  - Dyskinesia [Unknown]
  - Tachyphrenia [Unknown]
  - Somnolence [Unknown]
  - Fatigue [Unknown]
  - Weight increased [Unknown]
  - Restlessness [Unknown]
  - Disturbance in attention [Unknown]
  - Apathy [Unknown]
  - Feeling of despair [Unknown]
  - Bradykinesia [Unknown]
